FAERS Safety Report 23708452 (Version 1)
Quarter: 2024Q2

REPORT INFORMATION
  Report Type: Spontaneous
  Country: GB (occurrence: GB)
  Receive Date: 20240404
  Receipt Date: 20240404
  Transmission Date: 20240716
  Serious: Yes (Hospitalization)
  Sender: FDA-Public Use
  Company Number: None

PATIENT
  Age: 51 Year
  Sex: Male

DRUGS (13)
  1. TADALAFIL [Suspect]
     Active Substance: TADALAFIL
     Route: 065
  2. COCODAMOL [Concomitant]
     Active Substance: ACETAMINOPHEN\CODEINE PHOSPHATE
     Dosage: 30 MG / 500 MG TABLETS ONE OR TWO TO BE TAKEN FOUR TIMES A DAY WHEN REQUIRED
  3. DOXAZOSIN [Concomitant]
     Active Substance: DOXAZOSIN MESYLATE
  4. LANSOPRAZOLE [Concomitant]
     Active Substance: LANSOPRAZOLE
     Dosage: MORNING
  5. ALPROSTADIL [Concomitant]
     Active Substance: ALPROSTADIL
     Dosage: USE AS DIRECTED, ADDITIONAL INFO.: DUO STARTER PACK. CARTRIDGES WITH DEVICE
  6. LEVOTHYROXINE SODIUM [Concomitant]
     Active Substance: LEVOTHYROXINE SODIUM
     Dosage: MORNING
  7. SERTRALINE [Concomitant]
     Active Substance: SERTRALINE HYDROCHLORIDE
     Dosage: 100 MG OR 50 MG TABLETS ONE TO BE TAKEN EACH DAY
  8. LISINOPRIL [Concomitant]
     Active Substance: LISINOPRIL
  9. LEVEMIR [Concomitant]
     Active Substance: INSULIN DETEMIR
     Dosage: 100 UNITS / ML. ACCORDING TO REQUIREMENTS - PT STATES 14 UNIT BD, ADDITIONAL INFO.: FLEXPEN. 3 ML...
  10. ATORVASTATIN [Concomitant]
     Active Substance: ATORVASTATIN
  11. NOVORAPID [Concomitant]
     Active Substance: INSULIN ASPART
     Dosage: BEFORE MEALS/PRN SHORTLY AFTER. PT UNABLE TO CONFIRM CLINIC LETTER 10/08 - 6-16 UNITS THROUGH DAY...
  12. CLOPIDOGREL [Concomitant]
     Active Substance: CLOPIDOGREL BISULFATE
  13. TACROLIMUS [Concomitant]
     Active Substance: TACROLIMUS

REACTIONS (2)
  - Cardiac septal hypertrophy [Unknown]
  - Loss of consciousness [Unknown]
